FAERS Safety Report 5019710-0 (Version None)
Quarter: 2006Q2

REPORT INFORMATION
  Report Type: 
  Country: None (occurrence: None)
  Receive Date: 20060601
  Receipt Date: 20060523
  Transmission Date: 20061013
  Serious: Yes (Hospitalization, Other)
  Sender: FDA-Public Use
  Company Number: 2006-01-1104

PATIENT
  Age: 42 Year
  Sex: Female
  Weight: 56 kg

DRUGS (11)
  1. AERIUS (DESLORATADINE) [Suspect]
     Indication: RASH
     Dosage: 1 TABLET QD ORAL
     Route: 048
     Dates: start: 20051122, end: 20051206
  2. ATARAX [Suspect]
     Dosage: ORAL
     Route: 048
     Dates: start: 20051122, end: 20051206
  3. FORTUM INJECTABLE [Suspect]
     Dosage: 3 G QD INTRAVENOUS
     Route: 042
     Dates: start: 20051128, end: 20051213
  4. TARGOCID INJECTABLE [Suspect]
     Dosage: 200 MG QD INTRAVENOUS
     Route: 042
     Dates: start: 20051128, end: 20051213
  5. CANCIDAS (CASPOFUNGIN ACETATE) INJECTABLE [Suspect]
     Dosage: 50 MG QD INTRAVENOUS
     Route: 042
     Dates: start: 20051125, end: 20051211
  6. CELLCEPT [Suspect]
     Indication: GRAFT VERSUS HOST DISEASE
     Dosage: SEE IMAGE
     Route: 042
     Dates: start: 20051124, end: 20051128
  7. CELLCEPT [Suspect]
     Indication: GRAFT VERSUS HOST DISEASE
     Dosage: SEE IMAGE
     Route: 042
     Dates: start: 20051128, end: 20051205
  8. CELLCEPT [Suspect]
     Indication: GRAFT VERSUS HOST DISEASE
     Dosage: SEE IMAGE
     Route: 042
     Dates: start: 20051124, end: 20051214
  9. CELLCEPT [Suspect]
     Indication: GRAFT VERSUS HOST DISEASE
     Dosage: SEE IMAGE
     Route: 042
     Dates: start: 20051206, end: 20051214
  10. CLONAZEPAM [Concomitant]
  11. VALACYCLOVIR [Concomitant]

REACTIONS (3)
  - GRAFT VERSUS HOST DISEASE [None]
  - HEPATITIS TOXIC [None]
  - NEUROPATHY [None]
